FAERS Safety Report 9639144 (Version 1)
Quarter: 2013Q4

REPORT INFORMATION
  Report Type: Spontaneous
  Country: DE (occurrence: DE)
  Receive Date: 20131022
  Receipt Date: 20131022
  Transmission Date: 20140711
  Serious: Yes (Other)
  Sender: FDA-Public Use
  Company Number: DE-ROXANE LABORATORIES, INC.-2013-RO-01709RO

PATIENT
  Age: 57 Year
  Sex: 0

DRUGS (2)
  1. LORAZEPAM [Suspect]
     Indication: SCHIZOAFFECTIVE DISORDER
  2. VALPROIC ACID [Suspect]
     Indication: SCHIZOAFFECTIVE DISORDER

REACTIONS (5)
  - Hyperammonaemic encephalopathy [Recovered/Resolved]
  - Drug withdrawal syndrome [Recovered/Resolved]
  - Psychomotor hyperactivity [Unknown]
  - Somnolence [Unknown]
  - Stupor [Unknown]
